FAERS Safety Report 21527207 (Version 1)
Quarter: 2022Q4

REPORT INFORMATION
  Report Type: Report from Study
  Country: US (occurrence: None)
  Receive Date: 20221031
  Receipt Date: 20221031
  Transmission Date: 20230113
  Serious: No
  Sender: FDA-Public Use
  Company Number: US-ABBVIE-4137836

PATIENT
  Sex: Female

DRUGS (3)
  1. HUMIRA [Suspect]
     Active Substance: ADALIMUMAB
     Indication: Rheumatoid arthritis
     Dosage: 40MG/0.4ML, CITRATE FREE
     Route: 058
  2. Pfizer BioNTech Covid-19 Vaccination [Concomitant]
     Indication: COVID-19 immunisation
     Dosage: FREQUENCY :ONCE
     Route: 030
  3. Pfizer BioNTech Covid-19 Vaccination [Concomitant]
     Indication: COVID-19 immunisation
     Dosage: BOOSTER DOSE, 1 IN ONCE
     Route: 030

REACTIONS (1)
  - Injection site bruising [Recovered/Resolved]
